FAERS Safety Report 15644444 (Version 2)
Quarter: 2018Q4

REPORT INFORMATION
  Report Type: Spontaneous
  Country: US (occurrence: US)
  Receive Date: 20181121
  Receipt Date: 20181210
  Transmission Date: 20190205
  Serious: No
  Sender: FDA-Public Use
  Company Number: US-BAYER-2018-216260

PATIENT

DRUGS (2)
  1. GADAVIST [Suspect]
     Active Substance: GADOBUTROL
     Indication: CHEST X-RAY
  2. GADAVIST [Suspect]
     Active Substance: GADOBUTROL
     Indication: SPINAL X-RAY
     Dosage: UNK UNK, ONCE

REACTIONS (3)
  - Dizziness [None]
  - Vomiting [Recovered/Resolved]
  - Nausea [Recovered/Resolved]

NARRATIVE: CASE EVENT DATE: 20181117
